FAERS Safety Report 25207074 (Version 1)
Quarter: 2025Q2

REPORT INFORMATION
  Report Type: Spontaneous
  Country: JP (occurrence: JP)
  Receive Date: 20250417
  Receipt Date: 20250417
  Transmission Date: 20250717
  Serious: Yes (Hospitalization)
  Sender: MYLAN
  Company Number: JP-MYE-2025M1032206AA

PATIENT
  Age: 81 Year
  Sex: Female

DRUGS (108)
  1. TACROLIMUS [Interacting]
     Active Substance: TACROLIMUS
     Indication: Rheumatoid arthritis
     Dosage: 2 MILLIGRAM, QD
     Route: 048
  2. TACROLIMUS [Interacting]
     Active Substance: TACROLIMUS
     Dosage: 2 MILLIGRAM, QD
  3. TACROLIMUS [Interacting]
     Active Substance: TACROLIMUS
     Dosage: 2 MILLIGRAM, QD
  4. TACROLIMUS [Interacting]
     Active Substance: TACROLIMUS
     Dosage: 2 MILLIGRAM, QD
     Route: 048
  5. TACROLIMUS [Interacting]
     Active Substance: TACROLIMUS
     Dosage: 1.5 MILLIGRAM, QD
     Route: 048
  6. TACROLIMUS [Interacting]
     Active Substance: TACROLIMUS
     Dosage: 1.5 MILLIGRAM, QD
  7. TACROLIMUS [Interacting]
     Active Substance: TACROLIMUS
     Dosage: 1.5 MILLIGRAM, QD
  8. TACROLIMUS [Interacting]
     Active Substance: TACROLIMUS
     Dosage: 1.5 MILLIGRAM, QD
     Route: 048
  9. TACROLIMUS [Interacting]
     Active Substance: TACROLIMUS
     Dosage: 0.2 MILLIGRAM, QD
  10. TACROLIMUS [Interacting]
     Active Substance: TACROLIMUS
     Dosage: 0.2 MILLIGRAM, QD
  11. TACROLIMUS [Interacting]
     Active Substance: TACROLIMUS
     Dosage: 0.2 MILLIGRAM, QD
     Route: 048
  12. TACROLIMUS [Interacting]
     Active Substance: TACROLIMUS
     Dosage: 0.2 MILLIGRAM, QD
     Route: 048
  13. TACROLIMUS [Interacting]
     Active Substance: TACROLIMUS
     Dosage: 1 MILLIGRAM, QD
  14. TACROLIMUS [Interacting]
     Active Substance: TACROLIMUS
     Dosage: 1 MILLIGRAM, QD
  15. TACROLIMUS [Interacting]
     Active Substance: TACROLIMUS
     Dosage: 1 MILLIGRAM, QD
     Route: 048
  16. TACROLIMUS [Interacting]
     Active Substance: TACROLIMUS
     Dosage: 1 MILLIGRAM, QD
     Route: 048
  17. PREDNISOLONE [Suspect]
     Active Substance: PREDNISOLONE
     Indication: COVID-19 pneumonia
     Dosage: FROM DAY -20 TO -17; AFTER BREAKFAST
  18. PREDNISOLONE [Suspect]
     Active Substance: PREDNISOLONE
     Dosage: FROM DAY -20 TO -17; AFTER BREAKFAST
     Route: 048
  19. PREDNISOLONE [Suspect]
     Active Substance: PREDNISOLONE
     Dosage: FROM DAY -20 TO -17; AFTER BREAKFAST
     Route: 048
  20. PREDNISOLONE [Suspect]
     Active Substance: PREDNISOLONE
     Dosage: FROM DAY -20 TO -17; AFTER BREAKFAST
  21. ENSITRELVIR [Interacting]
     Active Substance: ENSITRELVIR
     Indication: COVID-19 pneumonia
  22. ENSITRELVIR [Interacting]
     Active Substance: ENSITRELVIR
  23. ENSITRELVIR [Interacting]
     Active Substance: ENSITRELVIR
     Route: 048
  24. ENSITRELVIR [Interacting]
     Active Substance: ENSITRELVIR
     Route: 048
  25. ENSITRELVIR [Interacting]
     Active Substance: ENSITRELVIR
  26. ENSITRELVIR [Interacting]
     Active Substance: ENSITRELVIR
  27. ENSITRELVIR [Interacting]
     Active Substance: ENSITRELVIR
     Route: 048
  28. ENSITRELVIR [Interacting]
     Active Substance: ENSITRELVIR
     Route: 048
  29. COVID-19 VACCINE NOS [Suspect]
     Active Substance: COVID-19 VACCINE
     Indication: COVID-19 immunisation
  30. COVID-19 VACCINE NOS [Suspect]
     Active Substance: COVID-19 VACCINE
     Route: 065
  31. COVID-19 VACCINE NOS [Suspect]
     Active Substance: COVID-19 VACCINE
     Route: 065
  32. COVID-19 VACCINE NOS [Suspect]
     Active Substance: COVID-19 VACCINE
  33. REMDESIVIR [Suspect]
     Active Substance: REMDESIVIR
     Indication: COVID-19 pneumonia
  34. REMDESIVIR [Suspect]
     Active Substance: REMDESIVIR
  35. REMDESIVIR [Suspect]
     Active Substance: REMDESIVIR
     Route: 042
  36. REMDESIVIR [Suspect]
     Active Substance: REMDESIVIR
     Route: 042
  37. REMDESIVIR [Suspect]
     Active Substance: REMDESIVIR
  38. REMDESIVIR [Suspect]
     Active Substance: REMDESIVIR
  39. REMDESIVIR [Suspect]
     Active Substance: REMDESIVIR
     Route: 042
  40. REMDESIVIR [Suspect]
     Active Substance: REMDESIVIR
     Route: 042
  41. REMDESIVIR [Suspect]
     Active Substance: REMDESIVIR
  42. REMDESIVIR [Suspect]
     Active Substance: REMDESIVIR
  43. REMDESIVIR [Suspect]
     Active Substance: REMDESIVIR
     Route: 042
  44. REMDESIVIR [Suspect]
     Active Substance: REMDESIVIR
     Route: 042
  45. REMDESIVIR [Suspect]
     Active Substance: REMDESIVIR
  46. REMDESIVIR [Suspect]
     Active Substance: REMDESIVIR
  47. REMDESIVIR [Suspect]
     Active Substance: REMDESIVIR
     Route: 042
  48. REMDESIVIR [Suspect]
     Active Substance: REMDESIVIR
     Route: 042
  49. REMDESIVIR [Suspect]
     Active Substance: REMDESIVIR
     Dosage: THIRD COURSE
  50. REMDESIVIR [Suspect]
     Active Substance: REMDESIVIR
     Dosage: THIRD COURSE
     Route: 042
  51. REMDESIVIR [Suspect]
     Active Substance: REMDESIVIR
     Dosage: THIRD COURSE
  52. REMDESIVIR [Suspect]
     Active Substance: REMDESIVIR
     Dosage: THIRD COURSE
     Route: 042
  53. DEXAMETHASONE [Suspect]
     Active Substance: DEXAMETHASONE
     Indication: COVID-19 pneumonia
     Dosage: AFTER BREAKFAST; FROM DAY -30 TO DAY -21
  54. DEXAMETHASONE [Suspect]
     Active Substance: DEXAMETHASONE
     Dosage: AFTER BREAKFAST; FROM DAY -30 TO DAY -21
     Route: 048
  55. DEXAMETHASONE [Suspect]
     Active Substance: DEXAMETHASONE
     Dosage: AFTER BREAKFAST; FROM DAY -30 TO DAY -21
     Route: 048
  56. DEXAMETHASONE [Suspect]
     Active Substance: DEXAMETHASONE
     Dosage: AFTER BREAKFAST; FROM DAY -30 TO DAY -21
  57. DEXAMETHASONE [Suspect]
     Active Substance: DEXAMETHASONE
     Indication: COVID-19 pneumonia
     Dosage: 6 MILLIGRAM, QD
  58. DEXAMETHASONE [Suspect]
     Active Substance: DEXAMETHASONE
     Dosage: 6 MILLIGRAM, QD
     Route: 042
  59. DEXAMETHASONE [Suspect]
     Active Substance: DEXAMETHASONE
     Dosage: 6 MILLIGRAM, QD
     Route: 042
  60. DEXAMETHASONE [Suspect]
     Active Substance: DEXAMETHASONE
     Dosage: 6 MILLIGRAM, QD
  61. BARICITINIB [Suspect]
     Active Substance: BARICITINIB
     Indication: COVID-19 pneumonia
     Dosage: AFTER BREAKFAST; FROM DAY -23
  62. BARICITINIB [Suspect]
     Active Substance: BARICITINIB
     Dosage: AFTER BREAKFAST; FROM DAY -23
     Route: 048
  63. BARICITINIB [Suspect]
     Active Substance: BARICITINIB
     Dosage: AFTER BREAKFAST; FROM DAY -23
     Route: 048
  64. BARICITINIB [Suspect]
     Active Substance: BARICITINIB
     Dosage: AFTER BREAKFAST; FROM DAY -23
  65. METHYLPREDNISOLONE [Suspect]
     Active Substance: METHYLPREDNISOLONE
     Indication: COVID-19 pneumonia
     Dosage: FROM DAY -17
  66. METHYLPREDNISOLONE [Suspect]
     Active Substance: METHYLPREDNISOLONE
     Dosage: FROM DAY -17
     Route: 042
  67. METHYLPREDNISOLONE [Suspect]
     Active Substance: METHYLPREDNISOLONE
     Dosage: FROM DAY -17
     Route: 042
  68. METHYLPREDNISOLONE [Suspect]
     Active Substance: METHYLPREDNISOLONE
     Dosage: FROM DAY -17
  69. TOCILIZUMAB [Suspect]
     Active Substance: TOCILIZUMAB
     Indication: COVID-19 pneumonia
     Dosage: FROM DAY -13
  70. TOCILIZUMAB [Suspect]
     Active Substance: TOCILIZUMAB
     Dosage: FROM DAY -13
     Route: 042
  71. TOCILIZUMAB [Suspect]
     Active Substance: TOCILIZUMAB
     Dosage: FROM DAY -13
     Route: 042
  72. TOCILIZUMAB [Suspect]
     Active Substance: TOCILIZUMAB
     Dosage: FROM DAY -13
  73. SULFAMETHOXAZOLE\TRIMETHOPRIM [Concomitant]
     Active Substance: SULFAMETHOXAZOLE\TRIMETHOPRIM
     Indication: Product used for unknown indication
  74. SULFAMETHOXAZOLE\TRIMETHOPRIM [Concomitant]
     Active Substance: SULFAMETHOXAZOLE\TRIMETHOPRIM
     Route: 048
  75. SULFAMETHOXAZOLE\TRIMETHOPRIM [Concomitant]
     Active Substance: SULFAMETHOXAZOLE\TRIMETHOPRIM
     Route: 048
  76. SULFAMETHOXAZOLE\TRIMETHOPRIM [Concomitant]
     Active Substance: SULFAMETHOXAZOLE\TRIMETHOPRIM
  77. ROSUVASTATIN [Concomitant]
     Active Substance: ROSUVASTATIN
     Indication: Product used for unknown indication
     Dosage: AFTER BREAKFAST
  78. ROSUVASTATIN [Concomitant]
     Active Substance: ROSUVASTATIN
     Dosage: AFTER BREAKFAST
     Route: 048
  79. ROSUVASTATIN [Concomitant]
     Active Substance: ROSUVASTATIN
     Dosage: AFTER BREAKFAST
     Route: 048
  80. ROSUVASTATIN [Concomitant]
     Active Substance: ROSUVASTATIN
     Dosage: AFTER BREAKFAST
  81. NICORANDIL [Concomitant]
     Active Substance: NICORANDIL
     Indication: Hypertension
  82. NICORANDIL [Concomitant]
     Active Substance: NICORANDIL
     Route: 048
  83. NICORANDIL [Concomitant]
     Active Substance: NICORANDIL
     Route: 048
  84. NICORANDIL [Concomitant]
     Active Substance: NICORANDIL
  85. ASPIRIN [Concomitant]
     Active Substance: ASPIRIN
     Indication: Product used for unknown indication
     Dosage: AFTER BREAKFAST
  86. ASPIRIN [Concomitant]
     Active Substance: ASPIRIN
     Dosage: AFTER BREAKFAST
     Route: 048
  87. ASPIRIN [Concomitant]
     Active Substance: ASPIRIN
     Dosage: AFTER BREAKFAST
     Route: 048
  88. ASPIRIN [Concomitant]
     Active Substance: ASPIRIN
     Dosage: AFTER BREAKFAST
  89. ESOMEPRAZOLE [Concomitant]
     Active Substance: ESOMEPRAZOLE
     Indication: Product used for unknown indication
     Dosage: AFTER BREAKFAST
  90. ESOMEPRAZOLE [Concomitant]
     Active Substance: ESOMEPRAZOLE
     Dosage: AFTER BREAKFAST
     Route: 048
  91. ESOMEPRAZOLE [Concomitant]
     Active Substance: ESOMEPRAZOLE
     Dosage: AFTER BREAKFAST
     Route: 048
  92. ESOMEPRAZOLE [Concomitant]
     Active Substance: ESOMEPRAZOLE
     Dosage: AFTER BREAKFAST
  93. RIVASTIGMINE [Concomitant]
     Active Substance: RIVASTIGMINE
     Indication: Dementia
     Dosage: 18 MILLIGRAM, QD
  94. RIVASTIGMINE [Concomitant]
     Active Substance: RIVASTIGMINE
     Dosage: 18 MILLIGRAM, QD
     Route: 065
  95. RIVASTIGMINE [Concomitant]
     Active Substance: RIVASTIGMINE
     Dosage: 18 MILLIGRAM, QD
     Route: 065
  96. RIVASTIGMINE [Concomitant]
     Active Substance: RIVASTIGMINE
     Dosage: 18 MILLIGRAM, QD
  97. DENOSUMAB [Concomitant]
     Active Substance: DENOSUMAB
     Indication: Product used for unknown indication
  98. DENOSUMAB [Concomitant]
     Active Substance: DENOSUMAB
     Route: 058
  99. DENOSUMAB [Concomitant]
     Active Substance: DENOSUMAB
     Route: 058
  100. DENOSUMAB [Concomitant]
     Active Substance: DENOSUMAB
  101. PREDNISOLONE [Concomitant]
     Active Substance: PREDNISOLONE
     Indication: Rheumatoid arthritis
     Dosage: AFTER BREAKFAST
  102. PREDNISOLONE [Concomitant]
     Active Substance: PREDNISOLONE
     Dosage: AFTER BREAKFAST
     Route: 048
  103. PREDNISOLONE [Concomitant]
     Active Substance: PREDNISOLONE
     Dosage: AFTER BREAKFAST
     Route: 048
  104. PREDNISOLONE [Concomitant]
     Active Substance: PREDNISOLONE
     Dosage: AFTER BREAKFAST
  105. ABATACEPT [Concomitant]
     Active Substance: ABATACEPT
     Indication: Rheumatoid arthritis
  106. ABATACEPT [Concomitant]
     Active Substance: ABATACEPT
     Route: 042
  107. ABATACEPT [Concomitant]
     Active Substance: ABATACEPT
     Route: 042
  108. ABATACEPT [Concomitant]
     Active Substance: ABATACEPT

REACTIONS (6)
  - Drug clearance decreased [Recovered/Resolved]
  - Drug half-life increased [Recovered/Resolved]
  - Drug level increased [Recovered/Resolved]
  - Drug interaction [Recovered/Resolved]
  - Drug ineffective for unapproved indication [Unknown]
  - Off label use [Unknown]
